FAERS Safety Report 9510601 (Version 1)
Quarter: 2013Q3

REPORT INFORMATION
  Report Type: Report from Study
  Country: ES (occurrence: ES)
  Receive Date: 20130909
  Receipt Date: 20130909
  Transmission Date: 20140515
  Serious: Yes (Death, Other)
  Sender: FDA-Public Use
  Company Number: ES-GENZYME-MOZO-1000904

PATIENT
  Age: 63 Year
  Sex: Male
  Weight: 96 kg

DRUGS (5)
  1. MOZOBIL [Suspect]
     Indication: ACUTE MYELOID LEUKAEMIA
     Dosage: 19200 MG, Q12HR, INDUCTION PHASE
     Route: 042
     Dates: start: 20130801, end: 20130804
  2. FLUDARA [Suspect]
     Indication: ACUTE MYELOID LEUKAEMIA
     Dosage: 64 MG, UNK, INDUCTION PHASE
     Route: 042
     Dates: start: 20130801, end: 20130804
  3. IDARUBICIN [Suspect]
     Indication: ACUTE MYELOID LEUKAEMIA
     Dosage: 21 MG, UNK
     Route: 042
     Dates: start: 20130801, end: 20130803
  4. CYTARABINE [Suspect]
     Indication: ACUTE MYELOID LEUKAEMIA
     Dosage: 4296 MG, UNK
     Route: 042
     Dates: start: 20130801, end: 20130804
  5. G-CSF [Suspect]
     Indication: ACUTE MYELOID LEUKAEMIA
     Dosage: 480 MG, UNK
     Route: 058
     Dates: start: 20130801, end: 20130804

REACTIONS (8)
  - Multi-organ failure [Not Recovered/Not Resolved]
  - Atelectasis [Unknown]
  - Pericardial effusion [Unknown]
  - Hypovolaemic shock [Unknown]
  - Gastrointestinal necrosis [Unknown]
  - Pleural effusion [Unknown]
  - Hepatic infection fungal [Fatal]
  - Gastrointestinal fungal infection [Fatal]
